FAERS Safety Report 9494565 (Version 2)
Quarter: 2013Q3

REPORT INFORMATION
  Report Type: Spontaneous
  Country: AU (occurrence: AU)
  Receive Date: 20130903
  Receipt Date: 20130910
  Transmission Date: 20140515
  Serious: Yes (Hospitalization)
  Sender: FDA-Public Use
  Company Number: AU-VERTEX PHARMACEUTICALS INC-2013-009199

PATIENT
  Age: 49 Year
  Sex: Male
  Weight: 105 kg

DRUGS (3)
  1. INCIVO [Suspect]
     Indication: HEPATITIS C
     Dosage: 3 TABLETS (EACH 375 MG) TWO TIMES A DAY
     Route: 048
     Dates: start: 20130613
  2. RIBAVIRIN [Suspect]
     Indication: HEPATITIS C
     Dosage: DOSAGE FORM: UNSPECIFIED
     Route: 065
     Dates: start: 20130404
  3. PEG INTERFERON [Suspect]
     Indication: HEPATITIS C
     Dosage: DOSAGE FORM: UNSPECIFIED
     Route: 065
     Dates: start: 20130404

REACTIONS (2)
  - Abscess limb [Recovered/Resolved]
  - Rash [Recovered/Resolved]
